FAERS Safety Report 25063864 (Version 1)
Quarter: 2025Q1

REPORT INFORMATION
  Report Type: Spontaneous
  Country: GB (occurrence: GB)
  Receive Date: 20250311
  Receipt Date: 20250311
  Transmission Date: 20250409
  Serious: Yes (Hospitalization, Other)
  Sender: PFIZER
  Company Number: None

PATIENT
  Sex: Female

DRUGS (1)
  1. DEPO-PROVERA [Suspect]
     Active Substance: MEDROXYPROGESTERONE ACETATE

REACTIONS (6)
  - Eye oedema [Recovering/Resolving]
  - Headache [Not Recovered/Not Resolved]
  - Bacterial vaginosis [Recovering/Resolving]
  - Central serous chorioretinopathy [Unknown]
  - Blindness transient [Recovered/Resolved]
  - Illness [Unknown]

NARRATIVE: CASE EVENT DATE: 20230507
